FAERS Safety Report 9485355 (Version 2)
Quarter: 2013Q3

REPORT INFORMATION
  Report Type: Report from Study
  Country: AU (occurrence: AU)
  Receive Date: 20130828
  Receipt Date: 20130905
  Transmission Date: 20140515
  Serious: Yes (Hospitalization)
  Sender: FDA-Public Use
  Company Number: AU-ROCHE-1264806

PATIENT
  Age: 59 Year
  Sex: Male
  Weight: 106 kg

DRUGS (2)
  1. VEMURAFENIB [Suspect]
     Indication: METASTATIC MALIGNANT MELANOMA
     Route: 048
     Dates: end: 20130818
  2. GDC-0973 [Interacting]
     Indication: METASTATIC MALIGNANT MELANOMA
     Route: 048
     Dates: end: 20130818

REACTIONS (1)
  - Urticaria [Not Recovered/Not Resolved]
